FAERS Safety Report 24741644 (Version 1)
Quarter: 2024Q4

REPORT INFORMATION
  Report Type: Report from Study
  Country: CA (occurrence: CA)
  Receive Date: 20241217
  Receipt Date: 20241217
  Transmission Date: 20250114
  Serious: Yes (Death, Other)
  Sender: SANDOZ
  Company Number: CA-SANDOZ-SDZ2023CA072085

PATIENT
  Sex: Female

DRUGS (1)
  1. HYRIMOZ [Suspect]
     Active Substance: ADALIMUMAB-ADAZ
     Indication: Crohn^s disease
     Dosage: 40 MG, Q2W
     Route: 058
     Dates: start: 20220509

REACTIONS (6)
  - Death [Fatal]
  - Influenza like illness [Unknown]
  - General physical health deterioration [Unknown]
  - Cough [Unknown]
  - Pyrexia [Unknown]
  - Drug ineffective [Unknown]
